FAERS Safety Report 15468521 (Version 1)
Quarter: 2018Q4

REPORT INFORMATION
  Report Type: Spontaneous
  Country: US (occurrence: US)
  Receive Date: 20181005
  Receipt Date: 20181005
  Transmission Date: 20190204
  Serious: No
  Sender: FDA-Public Use
  Company Number: US-SA-2018SA269418

PATIENT
  Age: 68 Year
  Sex: Male

DRUGS (1)
  1. ALLEGRA-D 24 HOUR [Suspect]
     Active Substance: FEXOFENADINE HYDROCHLORIDE\PSEUDOEPHEDRINE HYDROCHLORIDE
     Indication: HYPERSENSITIVITY
     Dosage: UNK UNK, QD
     Dates: start: 20180801

REACTIONS (7)
  - Dry throat [Unknown]
  - Insomnia [Unknown]
  - Ear congestion [Unknown]
  - Feeling jittery [Unknown]
  - Anxiety [Unknown]
  - Nasal congestion [Unknown]
  - Head discomfort [Unknown]
